FAERS Safety Report 5481939-5 (Version None)
Quarter: 2007Q4

REPORT INFORMATION
  Report Type: 
  Country: None (occurrence: None)
  Receive Date: 20071010
  Receipt Date: 19910618
  Transmission Date: 20080405
  Serious: Yes (Death, Hospitalization)
  Sender: FDA-Public Use
  Company Number: ES-MERCK-91060507

PATIENT
  Age: 51 Year
  Sex: Female

DRUGS (2)
  1. MEVACOR [Suspect]
     Indication: HYPERCHOLESTEROLAEMIA
     Route: 048
     Dates: start: 19890101, end: 19910101
  2. ALLOPURINOL [Concomitant]
     Route: 065
     Dates: start: 19890101

REACTIONS (3)
  - ENCEPHALOPATHY [None]
  - HEPATIC FAILURE [None]
  - HEPATITIS [None]
